FAERS Safety Report 5225347-0 (Version None)
Quarter: 2007Q1

REPORT INFORMATION
  Report Type: 
  Country: None (occurrence: None)
  Receive Date: 20070131
  Receipt Date: 20061129
  Transmission Date: 20070707
  Serious: No
  Sender: FDA-Public Use
  Company Number: US-AMGEN-US201771

PATIENT
  Sex: Male
  Weight: 99.9 kg

DRUGS (1)
  1. VECTIBIX [Suspect]
     Indication: COLORECTAL CANCER
     Route: 042
     Dates: start: 20061018

REACTIONS (3)
  - CONJUNCTIVITIS [None]
  - EYE IRRITATION [None]
  - EYE PAIN [None]
